FAERS Safety Report 16046421 (Version 1)
Quarter: 2019Q1

REPORT INFORMATION
  Report Type: Spontaneous
  Country: US (occurrence: US)
  Receive Date: 20190307
  Receipt Date: 20190307
  Transmission Date: 20190418
  Serious: No
  Sender: FDA-Public Use
  Company Number: US-GLAXOSMITHKLINE-US2019037747

PATIENT
  Sex: Female

DRUGS (1)
  1. BENLYSTA [Suspect]
     Active Substance: BELIMUMAB
     Indication: SYSTEMIC LUPUS ERYTHEMATOSUS
     Dosage: 600 OR 650 MG, UNK
     Route: 042

REACTIONS (13)
  - Chills [Recovered/Resolved]
  - Asthenia [Not Recovered/Not Resolved]
  - Insurance issue [Not Recovered/Not Resolved]
  - Malaise [Recovered/Resolved]
  - Therapy cessation [Recovered/Resolved]
  - Neck injury [Not Recovered/Not Resolved]
  - Drug ineffective [Recovered/Resolved]
  - Bone pain [Recovered/Resolved]
  - Influenza [Recovered/Resolved]
  - Road traffic accident [Unknown]
  - Pyrexia [Recovered/Resolved]
  - Limb injury [Not Recovered/Not Resolved]
  - Fatigue [Recovered/Resolved]

NARRATIVE: CASE EVENT DATE: 2018
